FAERS Safety Report 24430515 (Version 2)
Quarter: 2024Q4

REPORT INFORMATION
  Report Type: Spontaneous
  Country: US (occurrence: US)
  Receive Date: 20241013
  Receipt Date: 20241022
  Transmission Date: 20250114
  Serious: Yes (Death, Life-Threatening, Hospitalization, Other)
  Sender: ADVANZ PHARMA
  Company Number: US-MLMSERVICE-20240923-PI203664-00095-1

PATIENT

DRUGS (1)
  1. HYDROXYCHLOROQUINE [Suspect]
     Active Substance: HYDROXYCHLOROQUINE
     Indication: Chronic cutaneous lupus erythematosus
     Dosage: 200 MG, BID

REACTIONS (6)
  - Metabolic encephalopathy [Fatal]
  - Intestinal ischaemia [Fatal]
  - Pneumatosis intestinalis [Fatal]
  - Abdominal distension [Fatal]
  - Peripheral swelling [Fatal]
  - Hepatic cirrhosis [Fatal]
